FAERS Safety Report 14301791 (Version 1)
Quarter: 2017Q4

REPORT INFORMATION
  Report Type: Spontaneous
  Country: US (occurrence: US)
  Receive Date: 20171218
  Receipt Date: 20171218
  Transmission Date: 20180321
  Serious: No
  Sender: FDA-Public Use
  Company Number: None

PATIENT
  Age: 36 Year
  Sex: Female
  Weight: 75.15 kg

DRUGS (5)
  1. SUDAFED 24 HOUR [Suspect]
     Active Substance: PSEUDOEPHEDRINE HYDROCHLORIDE
     Indication: NASOPHARYNGITIS
     Dosage: ?          QUANTITY:1 TABLET(S);?
     Route: 048
     Dates: start: 20171210, end: 20171213
  2. BIRTH CONTROL--GENERIC FOR NORDETTE [Concomitant]
  3. DAILY VITAMIN [Concomitant]
     Active Substance: VITAMINS
  4. GUAFENISEN [Concomitant]
  5. MELATONIN [Concomitant]
     Active Substance: MELATONIN

REACTIONS (1)
  - Palpitations [None]

NARRATIVE: CASE EVENT DATE: 20171211
